FAERS Safety Report 20465396 (Version 3)
Quarter: 2022Q1

REPORT INFORMATION
  Report Type: Report from Study
  Country: US (occurrence: US)
  Receive Date: 20220212
  Receipt Date: 20220311
  Transmission Date: 20220423
  Serious: Yes (Hospitalization)
  Sender: FDA-Public Use
  Company Number: US-REGENERON PHARMACEUTICALS, INC.-2022-24979

PATIENT

DRUGS (14)
  1. CEMIPLIMAB [Suspect]
     Active Substance: CEMIPLIMAB
     Indication: Squamous cell carcinoma
     Dosage: 350 MG, UNK
     Route: 042
     Dates: start: 20220202, end: 20220202
  2. SERINE/THREONINE-PROTEIN KINASE 19 [Suspect]
     Active Substance: SERINE/THREONINE-PROTEIN KINASE 19
     Indication: Squamous cell carcinoma
     Dosage: 1 X 10^6PFU/ML (1 IN 3 WK)
     Route: 036
     Dates: start: 20220113, end: 20220113
  3. SERINE/THREONINE-PROTEIN KINASE 19 [Suspect]
     Active Substance: SERINE/THREONINE-PROTEIN KINASE 19
     Dosage: 1 X 10^7 PFU/ML (1 IN 3 WK)
     Route: 036
     Dates: start: 20220202, end: 20220202
  4. ATORVASTATIN [Concomitant]
     Active Substance: ATORVASTATIN
     Indication: Hyperlipidaemia
     Dosage: 40 MG (40 MG,1 IN 1 D)
     Route: 048
     Dates: start: 20210920
  5. ATORVASTATIN [Concomitant]
     Active Substance: ATORVASTATIN
     Indication: Peripheral arterial occlusive disease
  6. CHOLECALCIFEROL [Concomitant]
     Active Substance: CHOLECALCIFEROL
     Indication: Vitamin D deficiency
     Dosage: 1000 IU (1000 IU,1 IN 1 D)
     Route: 048
     Dates: start: 2016
  7. GLIPIZIDE [Concomitant]
     Active Substance: GLIPIZIDE
     Indication: Diabetes mellitus
     Dosage: 20 MG (10 MG,2 IN 1 D)
     Route: 048
     Dates: start: 2017
  8. LISINOPRIL [Concomitant]
     Active Substance: LISINOPRIL
     Indication: Hypertension
     Dosage: 20 MG (20MG,1 IN 1 D)
     Route: 048
     Dates: start: 2017
  9. LISINOPRIL [Concomitant]
     Active Substance: LISINOPRIL
     Indication: Peripheral arterial occlusive disease
  10. MAGNESIUM OXIDE [Concomitant]
     Active Substance: MAGNESIUM OXIDE
     Indication: Gastrooesophageal reflux disease
     Dosage: 400 MG (400 MG,1 IN 1 D)
     Route: 048
     Dates: start: 2018
  11. MAGNESIUM OXIDE [Concomitant]
     Active Substance: MAGNESIUM OXIDE
     Indication: Dyspepsia
  12. MULTIVITAMIN                       /00097801/ [Concomitant]
     Indication: Supplementation therapy
     Dosage: 1 TABLET (1 DOSAGE FORMS,1 IN 1 D)
     Route: 048
     Dates: start: 2016
  13. SODIUM BICARBONATE [Concomitant]
     Active Substance: SODIUM BICARBONATE
     Indication: Dyspepsia
     Dosage: 1300 MG (650 MG,2 IN 1 D)
     Route: 048
     Dates: start: 2018
  14. SODIUM BICARBONATE [Concomitant]
     Active Substance: SODIUM BICARBONATE
     Indication: Gastrooesophageal reflux disease

REACTIONS (1)
  - Cytokine release syndrome [Recovered/Resolved]

NARRATIVE: CASE EVENT DATE: 20220202
